FAERS Safety Report 22594923 (Version 1)
Quarter: 2023Q2

REPORT INFORMATION
  Report Type: Spontaneous
  Country: FR (occurrence: FR)
  Receive Date: 20230613
  Receipt Date: 20230613
  Transmission Date: 20230721
  Serious: Yes (Hospitalization, Disabling, Other)
  Sender: FDA-Public Use
  Company Number: FR-PFIZER INC-202300205105

PATIENT
  Age: 45 Year
  Sex: Female
  Weight: 62 kg

DRUGS (17)
  1. ENBREL [Suspect]
     Active Substance: ETANERCEPT
     Indication: Product used for unknown indication
     Dosage: 50 MG, WEEKLY
     Route: 058
     Dates: start: 201506, end: 201508
  2. ADALIMUMAB [Suspect]
     Active Substance: ADALIMUMAB
     Indication: HLA-B*1502 assay negative
     Dosage: 40 MG FREQ:2 WK;
     Route: 065
     Dates: start: 20150324, end: 201507
  3. NABUMETONE [Concomitant]
     Active Substance: NABUMETONE
     Route: 065
  4. ACETAMINOPHEN\OPIUM [Concomitant]
     Active Substance: ACETAMINOPHEN\OPIUM
     Route: 065
  5. CIMZIA [Concomitant]
     Active Substance: CERTOLIZUMAB PEGOL
     Dosage: 200 MILLIGRAM
     Route: 065
     Dates: start: 2015, end: 202511
  6. CIMZIA [Concomitant]
     Active Substance: CERTOLIZUMAB PEGOL
     Dosage: FREQ:2 WK;FORM STRENGTH: 200 MILLIGRAM
     Route: 065
     Dates: start: 201504, end: 2015
  7. XYLOCAINE [Concomitant]
     Active Substance: LIDOCAINE HYDROCHLORIDE
     Dosage: FREQUENCY: MORNING AND NIGHT
     Route: 048
  8. BETAMETHASONE DIPROPIONATE\BETAMETHASONE SODIUM PHOSPHATE [Concomitant]
     Active Substance: BETAMETHASONE DIPROPIONATE\BETAMETHASONE SODIUM PHOSPHATE
     Route: 065
  9. ARAVA [Concomitant]
     Active Substance: LEFLUNOMIDE
     Dosage: FORM STRENGTH: 200 MILLIGRAM
     Route: 065
  10. REMICADE [Concomitant]
     Active Substance: INFLIXIMAB
     Route: 042
  11. ESOMEPRAZOLE [Concomitant]
     Active Substance: ESOMEPRAZOLE
     Dosage: 1 CAPSULE; FORM STRENGTH: 40 MILLIGRAM; MORNING
     Route: 048
  12. HYDROCORTISONE [Concomitant]
     Active Substance: HYDROCORTISONE
     Dosage: FREQ:.5 D;
     Route: 065
  13. NAPROXEN [Concomitant]
     Active Substance: NAPROXEN
     Dosage: 1 TO 2 SUPPOSITORIES PER DAY
     Route: 065
  14. EFFERALGAN [Concomitant]
     Active Substance: ACETAMINOPHEN
     Dosage: UP TO 4 TABLETS/DAY
     Route: 065
  15. FLUOXETINE [Concomitant]
     Active Substance: FLUOXETINE HYDROCHLORIDE
     Dosage: FORM STRENGTH: 20 MILLIGRAM
     Route: 065
  16. Nifluril [Concomitant]
     Dosage: 1 SUPPOSITORY AT NIGHT; FORM STRENGTH: 700 MILLIGRAM
     Route: 065
  17. IXPRIM [Concomitant]
     Active Substance: ACETAMINOPHEN\TRAMADOL HYDROCHLORIDE
     Dosage: FREQUENCY: IF NEEDED
     Route: 065
     Dates: start: 2015

REACTIONS (96)
  - Peptic ulcer [Unknown]
  - Knee operation [Unknown]
  - Neck pain [Unknown]
  - Systemic lupus erythematosus [Unknown]
  - Myelosuppression [Unknown]
  - Scleroderma [Unknown]
  - Gastritis [Unknown]
  - Back pain [Unknown]
  - Unevaluable event [Unknown]
  - Caesarean section [Unknown]
  - Oedema [Unknown]
  - Gastrointestinal inflammation [Unknown]
  - Intervertebral disc disorder [Unknown]
  - Kyphosis [Unknown]
  - Unevaluable event [Unknown]
  - Abdominal pain [Unknown]
  - Cervicobrachial syndrome [Unknown]
  - Drug dependence [Unknown]
  - Fall [Unknown]
  - Tonsillectomy [Unknown]
  - Myalgia [Unknown]
  - Back pain [Unknown]
  - Hand fracture [Unknown]
  - Gastrointestinal ulcer [Unknown]
  - Unevaluable event [Unknown]
  - Intervertebral disc degeneration [Unknown]
  - Atrophy [Unknown]
  - Spinal pain [Unknown]
  - Sialoadenitis [Unknown]
  - Renal aplasia [Unknown]
  - Adrenal insufficiency [Unknown]
  - Arthralgia [Unknown]
  - Asthenia [Unknown]
  - Pain [Unknown]
  - Myelodysplastic syndrome [Unknown]
  - Psoriasis [Unknown]
  - Chest pain [Unknown]
  - Appendicitis [Unknown]
  - Uveitis [Unknown]
  - Macrocytosis [Unknown]
  - Raynaud^s phenomenon [Unknown]
  - Abdominal pain upper [Unknown]
  - Xerosis [Unknown]
  - Sleep disorder [Unknown]
  - Skin depigmentation [Unknown]
  - Irritable bowel syndrome [Unknown]
  - Middle insomnia [Unknown]
  - Vitamin B12 deficiency [Unknown]
  - Myalgia [Unknown]
  - Functional gastrointestinal disorder [Unknown]
  - Night sweats [Unknown]
  - Gastrointestinal disorder [Unknown]
  - Unevaluable event [Unknown]
  - Unevaluable event [Unknown]
  - Pelvic pain [Unknown]
  - Constipation [Unknown]
  - Spinal osteoarthritis [Unknown]
  - Psychiatric symptom [Unknown]
  - Photosensitivity reaction [Unknown]
  - Haemoglobin decreased [Unknown]
  - Muscular weakness [Unknown]
  - Musculoskeletal stiffness [Unknown]
  - Back pain [Unknown]
  - Inflammation [Unknown]
  - Swelling [Unknown]
  - Nausea [Unknown]
  - Discomfort [Unknown]
  - Gastrooesophageal reflux disease [Unknown]
  - Disturbance in attention [Unknown]
  - Polyarthritis [Unknown]
  - Sacral pain [Unknown]
  - Weight decreased [Unknown]
  - Telangiectasia [Unknown]
  - Gingival bleeding [Unknown]
  - Inflammatory pain [Unknown]
  - Vomiting [Unknown]
  - Vitamin B complex deficiency [Unknown]
  - Osteoarthritis [Unknown]
  - Unevaluable event [Unknown]
  - Adrenocorticotropic hormone deficiency [Unknown]
  - Psychomotor retardation [Unknown]
  - Impaired quality of life [Unknown]
  - Pain in extremity [Unknown]
  - Hypotension [Unknown]
  - Peripheral swelling [Unknown]
  - Fatigue [Unknown]
  - Dry eye [Unknown]
  - Arthralgia [Unknown]
  - Pain [Unknown]
  - Dry mouth [Unknown]
  - Arthralgia [Unknown]
  - COVID-19 [Unknown]
  - Therapeutic product effect incomplete [Unknown]
  - Oral candidiasis [Unknown]
  - Drug ineffective [Unknown]
  - Anaemia [Unknown]
